FAERS Safety Report 11862563 (Version 1)
Quarter: 2015Q4

REPORT INFORMATION
  Report Type: Spontaneous
  Country: US (occurrence: US)
  Receive Date: 20151223
  Receipt Date: 20151223
  Transmission Date: 20160305
  Serious: No
  Sender: FDA-Public Use
  Company Number: US-ALVOGEN-2015-ALVOGEN-019445

PATIENT
  Age: 78 Year
  Sex: Male

DRUGS (9)
  1. FENOFIBRATE. [Concomitant]
     Active Substance: FENOFIBRATE
  2. HYDROCHLOROTHIAZIDE. [Concomitant]
     Active Substance: HYDROCHLOROTHIAZIDE
  3. MEMANTINE HYDROCHLORIDE [Concomitant]
     Active Substance: MEMANTINE HYDROCHLORIDE
  4. WARFARIN [Concomitant]
     Active Substance: WARFARIN
  5. RIVASTIGMINE. [Suspect]
     Active Substance: RIVASTIGMINE
     Indication: DEMENTIA
     Route: 062
  6. LISINOPRIL. [Concomitant]
     Active Substance: LISINOPRIL
  7. CELECOXIB. [Concomitant]
     Active Substance: CELECOXIB
  8. RIVASTIGMINE. [Suspect]
     Active Substance: RIVASTIGMINE
     Route: 062
  9. RIVASTIGMINE. [Suspect]
     Active Substance: RIVASTIGMINE
     Route: 062

REACTIONS (4)
  - Therapeutic response decreased [Not Recovered/Not Resolved]
  - Malaise [Recovered/Resolved]
  - Product adhesion issue [None]
  - Nausea [Recovered/Resolved]
